FAERS Safety Report 6697347-5 (Version None)
Quarter: 2010Q2

REPORT INFORMATION
  Report Type: 
  Country: None (occurrence: None)
  Receive Date: 20100422
  Receipt Date: 20100408
  Transmission Date: 20101027
  Serious: No
  Sender: FDA-Public Use
  Company Number: A-NJ2010-35167

PATIENT
  Age: 67 Year
  Sex: Female

DRUGS (3)
  1. TRACLEER [Suspect]
     Indication: SARCOIDOSIS
     Dosage: 125 MG, BID, ORAL
     Route: 048
     Dates: start: 20090930, end: 20100309
  2. FLOLAN [Concomitant]
  3. TADALAFIL (TADALAFIL) [Concomitant]

REACTIONS (3)
  - DRUG INEFFECTIVE FOR UNAPPROVED INDICATION [None]
  - OFF LABEL USE [None]
  - PULMONARY OEDEMA [None]
